FAERS Safety Report 10167557 (Version 2)
Quarter: 2014Q4

REPORT INFORMATION
  Report Type: Spontaneous
  Country: IT (occurrence: IT)
  Receive Date: 20140512
  Receipt Date: 20141203
  Transmission Date: 20150528
  Serious: Yes (Hospitalization)
  Sender: FDA-Public Use
  Company Number: IT-TEVA-478668ISR

PATIENT
  Age: 74 Year
  Sex: Male
  Weight: 73 kg

DRUGS (4)
  1. IRINOTECAN SANDOZ GMBH [Suspect]
     Active Substance: IRINOTECAN
     Indication: RECTAL ADENOCARCINOMA
     Dosage: 240 MILLIGRAM DAILY;
     Route: 042
     Dates: start: 20140410, end: 20140410
  2. CALCIO LEVOFOLINATO TEVA [Concomitant]
     Active Substance: LEUCOVORIN CALCIUM
     Indication: RECTAL ADENOCARCINOMA
     Dosage: 240 MILLIGRAM DAILY;
     Route: 042
     Dates: start: 20140410, end: 20140410
  3. FLUORURACILE TEVA [Suspect]
     Active Substance: FLUOROURACIL
     Indication: RECTAL ADENOCARCINOMA
     Dosage: 3200 MILLIGRAM DAILY;
     Route: 042
     Dates: start: 20140410, end: 20140411
  4. AVASTIN [Concomitant]
     Active Substance: BEVACIZUMAB
     Indication: RECTAL ADENOCARCINOMA
     Dosage: 360 MILLIGRAM DAILY;
     Route: 042
     Dates: start: 20140410, end: 20140410

REACTIONS (3)
  - Pyrexia [Recovering/Resolving]
  - Asthenia [Recovering/Resolving]
  - Diarrhoea [Recovering/Resolving]

NARRATIVE: CASE EVENT DATE: 20140423
